FAERS Safety Report 13224355 (Version 1)
Quarter: 2017Q1

REPORT INFORMATION
  Report Type: Other
  Country: US (occurrence: US)
  Receive Date: 20170212
  Receipt Date: 20170212
  Transmission Date: 20170428
  Serious: No
  Sender: FDA-Public Use
  Company Number: US-ACORDA-ACO_131611_2016

PATIENT

DRUGS (1)
  1. AMPYRA [Suspect]
     Active Substance: DALFAMPRIDINE
     Indication: PRODUCT USED FOR UNKNOWN INDICATION
     Dosage: UNK
     Route: 065

REACTIONS (10)
  - Drug ineffective [None]
  - Balance disorder [None]
  - Movement disorder [None]
  - Dizziness [None]
  - Walking aid user [None]
  - Condition aggravated [Unknown]
  - Constipation [None]
  - Memory impairment [None]
  - Gait disturbance [None]
  - Peroneal nerve palsy [None]
